FAERS Safety Report 6420486-0 (Version None)
Quarter: 2009Q4

REPORT INFORMATION
  Report Type: 
  Country: None (occurrence: None)
  Receive Date: 20091029
  Receipt Date: 20080325
  Transmission Date: 20100525
  Serious: Yes (Hospitalization)
  Sender: FDA-Public Use
  Company Number: DE-GENENTECH-258661

PATIENT
  Sex: Female
  Weight: 54 kg

DRUGS (5)
  1. BEVACIZUMAB [Suspect]
     Indication: OVARIAN CANCER
     Dosage: 378 MG, UNK
     Route: 042
     Dates: start: 20071217, end: 20080128
  2. BEVACIZUMAB [Suspect]
     Dosage: 405 MG, UNK
     Route: 042
  3. CARBOPLATIN [Suspect]
     Indication: OVARIAN CANCER
     Dosage: 455 MG, UNK
     Route: 042
     Dates: start: 20071217, end: 20080128
  4. CARBOPLATIN [Suspect]
     Dosage: 457 MG, UNK
     Route: 042
  5. PACLITAXEL [Suspect]
     Indication: OVARIAN CANCER
     Dosage: 378 MG, UNK
     Route: 042
     Dates: start: 20071217

REACTIONS (2)
  - HYPOTENSION [None]
  - HYPOTONIA [None]
